FAERS Safety Report 22322167 (Version 1)
Quarter: 2023Q2

REPORT INFORMATION
  Report Type: Spontaneous
  Country: US (occurrence: US)
  Receive Date: 20230516
  Receipt Date: 20230516
  Transmission Date: 20230721
  Serious: No
  Sender: FDA-Public Use
  Company Number: US-Nobelpharma America, LLC-NPA-2023-00797

PATIENT
  Age: 25 Year
  Sex: Female

DRUGS (2)
  1. HYFTOR [Suspect]
     Active Substance: SIROLIMUS
     Indication: Tuberous sclerosis complex
     Dosage: APPLY 2.5CM TOPICALLY TWICE DAILY
     Route: 061
     Dates: start: 20230221
  2. HYFTOR [Suspect]
     Active Substance: SIROLIMUS
     Indication: Benign neoplasm of skin

REACTIONS (2)
  - Eye inflammation [Unknown]
  - Product dose omission issue [Unknown]

NARRATIVE: CASE EVENT DATE: 20230101
